FAERS Safety Report 4301722-3 (Version None)
Quarter: 2004Q1

REPORT INFORMATION
  Report Type: 
  Country: None (occurrence: None)
  Receive Date: 20040218
  Receipt Date: 20031118
  Transmission Date: 20041129
  Serious: Yes (Hospitalization)
  Sender: FDA-Public Use
  Company Number: 2003-11-1351

PATIENT
  Sex: Male

DRUGS (4)
  1. PEG-INTRON [Suspect]
     Indication: HEPATITIS C
     Dosage: 120 MCG QW
     Route: 058
     Dates: start: 20021004, end: 20030702
  2. REBETOL [Suspect]
     Indication: HEPATITIS C
     Dosage: 1000 MG QD ORAL
     Route: 048
     Dates: start: 20021004, end: 20030702
  3. ZANTAC [Concomitant]
  4. ADALAT [Concomitant]

REACTIONS (4)
  - BLOOD CALCIUM INCREASED [None]
  - FATIGUE [None]
  - SARCOIDOSIS [None]
  - WEIGHT DECREASED [None]
